FAERS Safety Report 7674142-1 (Version None)
Quarter: 2011Q3

REPORT INFORMATION
  Report Type: 
  Country: None (occurrence: None)
  Receive Date: 20110810
  Receipt Date: 20110727
  Transmission Date: 20111222
  Serious: Yes (Hospitalization, Other)
  Sender: FDA-Public Use
  Company Number: US-ELI_LILLY_AND_COMPANY-US201106008779

PATIENT
  Sex: Female
  Weight: 46.259 kg

DRUGS (15)
  1. VITAMIN D [Concomitant]
     Dosage: 50000 IU, WEEKLY (1/W)
  2. COREG [Concomitant]
     Dosage: 6.25 MG, BID
  3. COUMADIN [Concomitant]
     Dosage: 2.5 MG, 5/W
  4. COUMADIN [Concomitant]
     Dosage: 5 MG, 2/W
  5. POTASSIUM CHLORIDE [Concomitant]
     Dosage: 10 MEQ, QD
  6. CALCIUM CARBONATE [Concomitant]
     Dosage: 500 MG, QD
  7. SENOKOT [Concomitant]
     Dosage: UNK, QD
  8. METAMUCIL-2 [Concomitant]
     Dosage: UNK, QD
  9. ZYPREXA [Concomitant]
     Dosage: 5 MG, EACH EVENING
  10. FORTEO [Suspect]
     Indication: OSTEOPOROSIS
     Dosage: 20 UG, QD
     Route: 058
     Dates: start: 20110501
  11. LASIX [Concomitant]
     Dosage: 20 MG, QD
  12. PAXIL [Concomitant]
     Dosage: 30 MG, QD
  13. ZESTRIL [Concomitant]
     Dosage: 5 MG, BID
  14. SYNTHROID [Concomitant]
     Dosage: 75 UG, QD
  15. VICODIN [Concomitant]
     Indication: PAIN
     Dosage: 1 DF, EVERY 6 HRS

REACTIONS (12)
  - COGNITIVE DISORDER [None]
  - WHITE BLOOD CELL COUNT ABNORMAL [None]
  - FALL [None]
  - BALANCE DISORDER [None]
  - GAIT DISTURBANCE [None]
  - HAEMOGLOBIN ABNORMAL [None]
  - VISUAL IMPAIRMENT [None]
  - HYPOGLYCAEMIA [None]
  - PELVIC FRACTURE [None]
  - PAIN IN EXTREMITY [None]
  - HUMERUS FRACTURE [None]
  - COORDINATION ABNORMAL [None]
